FAERS Safety Report 6035315-7 (Version None)
Quarter: 2009Q1

REPORT INFORMATION
  Report Type: 
  Country: None (occurrence: None)
  Receive Date: 20090108
  Receipt Date: 20081210
  Transmission Date: 20090719
  Serious: Yes (Other)
  Sender: FDA-Public Use
  Company Number: 130777

PATIENT
  Age: 60 Year
  Sex: Female

DRUGS (5)
  1. PENTOTHAL [Suspect]
     Indication: ANAESTHESIA
     Dosage: 300 MG, INTRAVENOUS
     Route: 042
     Dates: start: 20081127, end: 20081127
  2. PROPOFOL [Suspect]
     Indication: INDUCTION OF ANAESTHESIA
     Dosage: 4 MG/KG, INTRAVENOUS DRIP
     Route: 041
     Dates: start: 20081027, end: 20081127
  3. (SUXAMETHONIUM) [Suspect]
     Indication: ANAESTHESIA
     Dosage: 100 MG, INTRAVENOUS BOLUS
     Route: 040
     Dates: start: 20081127, end: 20081127
  4. ULTIVA (REMIFENTANIL HYDROCHLORIDE FOR INJECTION (55) (REMIFENTANIL) [Concomitant]
  5. ANAESTHESIA (ANAESTHESIA) [Concomitant]

REACTIONS (2)
  - ANAPHYLACTIC SHOCK [None]
  - ERYTHEMA [None]
